FAERS Safety Report 25039245 (Version 1)
Quarter: 2025Q1

REPORT INFORMATION
  Report Type: Spontaneous
  Country: US (occurrence: US)
  Receive Date: 20250305
  Receipt Date: 20250305
  Transmission Date: 20250409
  Serious: No
  Sender: ALVOGEN
  Company Number: US-ALVOGEN-2024095414

PATIENT

DRUGS (1)
  1. HYDROCODONE BITARTRATE [Suspect]
     Active Substance: HYDROCODONE BITARTRATE
     Indication: Pain

REACTIONS (2)
  - Product use issue [Unknown]
  - Product availability issue [Unknown]
